FAERS Safety Report 5637238-1 (Version None)
Quarter: 2008Q1

REPORT INFORMATION
  Report Type: 
  Country: None (occurrence: None)
  Receive Date: 20080225
  Receipt Date: 20070330
  Transmission Date: 20080703
  Serious: No
  Sender: FDA-Public Use
  Company Number: US-BRISTOL-MYERS SQUIBB COMPANY-13734876

PATIENT
  Age: 68 Year
  Sex: Female
  Weight: 52 kg

DRUGS (7)
  1. KENALOG [Suspect]
     Indication: BACK PAIN
  2. NEXIUM [Concomitant]
  3. CLARINEX [Concomitant]
  4. VIVELLE [Concomitant]
     Route: 062
  5. PROMETRIUM [Concomitant]
  6. KLONOPIN [Concomitant]
  7. MOBIC [Concomitant]

REACTIONS (1)
  - MENOPAUSAL SYMPTOMS [None]
